FAERS Safety Report 12412176 (Version 1)
Quarter: 2016Q2

REPORT INFORMATION
  Report Type: Spontaneous
  Country: CN (occurrence: CN)
  Receive Date: 20160527
  Receipt Date: 20160527
  Transmission Date: 20160815
  Serious: Yes (Other)
  Sender: FDA-Public Use
  Company Number: CN-PFIZER INC-2016212791

PATIENT
  Age: 12 Year
  Sex: Female

DRUGS (1)
  1. SUTENT [Suspect]
     Active Substance: SUNITINIB MALATE
     Indication: RENAL CANCER METASTATIC
     Dosage: 25 MG, DAILY (4 WEEKS FOLLOWED BY A 2-WEEK DRUG-FREE INTERVAL)
     Dates: start: 20110801

REACTIONS (7)
  - Rash [Recovered/Resolved]
  - Fatigue [Unknown]
  - Skin exfoliation [Recovered/Resolved]
  - Asthenia [Unknown]
  - Temperature intolerance [Unknown]
  - Product use issue [Unknown]
  - Growth retardation [Unknown]

NARRATIVE: CASE EVENT DATE: 2011
